FAERS Safety Report 6552402-5 (Version None)
Quarter: 2010Q1

REPORT INFORMATION
  Report Type: 
  Country: None (occurrence: None)
  Receive Date: 20100126
  Receipt Date: 20100114
  Transmission Date: 20100710
  Serious: Yes (Other)
  Sender: FDA-Public Use
  Company Number: JP-PFIZER INC-2010003179

PATIENT
  Age: 59 Year
  Sex: Male

DRUGS (3)
  1. GABAPEN [Suspect]
     Indication: PAIN
     Dosage: 1200 MG, 1X/DAY
     Route: 048
     Dates: start: 20091101
  2. CEROCRAL [Concomitant]
     Indication: ANALGESIC THERAPY
     Dosage: UNK
     Route: 048
  3. OXYNORM [Concomitant]
     Indication: PAIN
     Dosage: UNK
     Route: 048

REACTIONS (5)
  - ANXIETY [None]
  - DELIRIUM [None]
  - DRUG INEFFECTIVE [None]
  - HALLUCINATION [None]
  - WITHDRAWAL SYNDROME [None]
